FAERS Safety Report 13388591 (Version 2)
Quarter: 2017Q2

REPORT INFORMATION
  Report Type: Spontaneous
  Country: FR (occurrence: FR)
  Receive Date: 20170330
  Receipt Date: 20170612
  Transmission Date: 20170830
  Serious: Yes (Other)
  Sender: FDA-Public Use
  Company Number: FR-ELI_LILLY_AND_COMPANY-FR201703002996

PATIENT
  Age: 6 Year
  Sex: Female
  Weight: 21.9 kg

DRUGS (3)
  1. ABASAGLAR [Suspect]
     Active Substance: INSULIN GLARGINE
     Indication: TYPE 1 DIABETES MELLITUS
     Dosage: UNK, UNKNOWN
     Route: 058
     Dates: start: 20170221, end: 20170221
  2. HUMALOG [Suspect]
     Active Substance: INSULIN LISPRO
     Indication: TYPE 1 DIABETES MELLITUS
     Dosage: 4 DF, UNK
     Route: 058
     Dates: start: 20170217, end: 20170220
  3. HUMALOG MIX [Concomitant]
     Active Substance: INSULIN LISPRO
     Indication: TYPE 1 DIABETES MELLITUS
     Dosage: 4 DF, UNK
     Route: 058
     Dates: start: 20170217, end: 20170221

REACTIONS (2)
  - Hypoglycaemia [Recovered/Resolved]
  - Wrong drug administered [Recovered/Resolved]

NARRATIVE: CASE EVENT DATE: 20170221
